FAERS Safety Report 16531853 (Version 1)
Quarter: 2019Q3

REPORT INFORMATION
  Report Type: Report from Study
  Country: None (occurrence: HU)
  Receive Date: 20190705
  Receipt Date: 20190705
  Transmission Date: 20191004
  Serious: Yes (Other)
  Sender: FDA-Public Use
  Company Number: HU-ABBVIE-19K-076-2843556-00

PATIENT
  Age: 68 Year
  Sex: Male

DRUGS (2)
  1. DUODOPA [Suspect]
     Active Substance: CARBIDOPA\LEVODOPA
     Indication: PARKINSON^S DISEASE
     Dosage: MORNING DOSE 4.5 ML; CONTINUOUS DOSE 3.4 ML/H;EXTRA DOSE 2.0 ML
     Route: 050
     Dates: start: 20140725
  2. QUETIAPINE TEVA [Concomitant]
     Active Substance: QUETIAPINE
     Indication: HALLUCINATION
     Dosage: IN THE EVENING
     Route: 048

REACTIONS (2)
  - Loss of consciousness [Recovered/Resolved]
  - Loss of consciousness [Recovered/Resolved]

NARRATIVE: CASE EVENT DATE: 20190626
